FAERS Safety Report 6017582-9 (Version None)
Quarter: 2008Q4

REPORT INFORMATION
  Report Type: 
  Country: None (occurrence: None)
  Receive Date: 20081223
  Receipt Date: 20081215
  Transmission Date: 20090506
  Serious: Yes (Hospitalization)
  Sender: FDA-Public Use
  Company Number: JP-ALLERGAN-0816141US

PATIENT
  Sex: Male

DRUGS (8)
  1. BOTULINUM TOXIN TYPE A [Suspect]
     Indication: TORTICOLLIS
     Dosage: 60 UNITS, SINGLE
     Route: 030
     Dates: start: 20070127, end: 20070127
  2. BOTULINUM TOXIN TYPE A [Suspect]
     Dosage: 180 UNITS, SINGLE
     Route: 030
     Dates: start: 20070327, end: 20070327
  3. BOTULINUM TOXIN TYPE A [Suspect]
     Dosage: 100 UNITS, SINGLE
     Route: 030
     Dates: start: 20070604, end: 20070604
  4. TRIHEXYPHENIDYL [Concomitant]
     Dosage: 4-8 MG, QD
     Route: 048
     Dates: start: 20070206, end: 20070227
  5. MECOBALAMIN [Concomitant]
     Dosage: 1.5 MG, QD
     Route: 048
     Dates: start: 20070306
  6. CHINESE MEDICINE [Concomitant]
     Indication: TORTICOLLIS
     Route: 048
     Dates: start: 20070126
  7. TIAPRIDE HYDROCHLORIDE [Concomitant]
     Indication: TORTICOLLIS
     Route: 048
     Dates: start: 20070501
  8. DICLOFENAC SODIUM [Concomitant]
     Indication: TORTICOLLIS
     Route: 048
     Dates: start: 20070501

REACTIONS (3)
  - HEAD INJURY [None]
  - ROAD TRAFFIC ACCIDENT [None]
  - SUBARACHNOID HAEMORRHAGE [None]
